FAERS Safety Report 24118336 (Version 10)
Quarter: 2024Q4

REPORT INFORMATION
  Report Type: Report from Study
  Country: CA (occurrence: CA)
  Receive Date: 20240722
  Receipt Date: 20241227
  Transmission Date: 20250114
  Serious: Yes (Hospitalization, Other)
  Sender: BIOCON
  Company Number: CA-BIOCON BIOLOGICS LIMITED-BBL2024005331

PATIENT

DRUGS (2)
  1. HULIO [Suspect]
     Active Substance: ADALIMUMAB-FKJP
     Indication: Rheumatoid arthritis
     Dosage: 40 MG, Q2W, EVERY OTHER WEEK
     Route: 058
     Dates: start: 20240626
  2. HULIO [Suspect]
     Active Substance: ADALIMUMAB-FKJP
     Dosage: 40 MG, Q2W
     Route: 065

REACTIONS (6)
  - Fall [Unknown]
  - Wrist fracture [Unknown]
  - Dementia [Unknown]
  - Product dose omission issue [Unknown]
  - Lack of injection site rotation [Unknown]
  - Product administered at inappropriate site [Unknown]
